FAERS Safety Report 9696343 (Version 2)
Quarter: 2013Q4

REPORT INFORMATION
  Report Type: Spontaneous
  Country: US (occurrence: US)
  Receive Date: 20131119
  Receipt Date: 20131119
  Transmission Date: 20140711
  Serious: Yes (Other)
  Sender: FDA-Public Use
  Company Number: US-TEVA-365287USA

PATIENT
  Age: 67 Year
  Sex: Female

DRUGS (2)
  1. OXALIPLATIN [Suspect]
     Indication: OESOPHAGEAL CARCINOMA
     Dosage: 100MG/20MG
  2. OXALIPLATIN [Suspect]
     Dosage: 50MG/10ML

REACTIONS (2)
  - Laryngospasm [Unknown]
  - Swollen tongue [Unknown]
